FAERS Safety Report 11214650 (Version 1)
Quarter: 2015Q2

REPORT INFORMATION
  Report Type: Spontaneous
  Country: US (occurrence: US)
  Receive Date: 20150624
  Receipt Date: 20150624
  Transmission Date: 20150821
  Serious: No
  Sender: FDA-Public Use
  Company Number: US-ASTRAZENECA-2015SE57328

PATIENT
  Sex: Male
  Weight: 75.1 kg

DRUGS (5)
  1. PREDNISONE. [Suspect]
     Active Substance: PREDNISONE
     Indication: CONDITION AGGRAVATED
     Route: 065
  2. METHOTREXATE [Suspect]
     Active Substance: METHOTREXATE
     Indication: RHEUMATOID ARTHRITIS
     Route: 065
     Dates: start: 2002
  3. METHOTREXATE [Suspect]
     Active Substance: METHOTREXATE
     Indication: RHEUMATOID ARTHRITIS
     Route: 065
     Dates: start: 2000
  4. CRESTOR [Suspect]
     Active Substance: ROSUVASTATIN CALCIUM
     Indication: BLOOD CHOLESTEROL INCREASED
     Route: 048
  5. SALSALATE. [Suspect]
     Active Substance: SALSALATE
     Indication: ANTIINFLAMMATORY THERAPY
     Dosage: 750 MG, ONE IN MORNING AND ONE IN NIGHT DAILY
     Route: 065

REACTIONS (10)
  - Rheumatoid arthritis [Unknown]
  - Adverse event [Unknown]
  - Intentional product misuse [Unknown]
  - General physical health deterioration [Unknown]
  - Peripheral swelling [Not Recovered/Not Resolved]
  - Blood cholesterol increased [Unknown]
  - Condition aggravated [Unknown]
  - Adverse drug reaction [Unknown]
  - Musculoskeletal discomfort [Unknown]
  - Drug effect decreased [Unknown]
